FAERS Safety Report 8181874-8 (Version None)
Quarter: 2012Q1

REPORT INFORMATION
  Report Type: 
  Country: None (occurrence: None)
  Receive Date: 20120302
  Receipt Date: 20120229
  Transmission Date: 20120608
  Serious: Yes (Death, Other)
  Sender: FDA-Public Use
  Company Number: RU-ROCHE-1044200

PATIENT

DRUGS (4)
  1. GLUCOCORTICOID [Concomitant]
     Indication: LUPUS NEPHRITIS
     Route: 048
  2. MABTHERA [Suspect]
     Indication: LUPUS NEPHRITIS
     Route: 042
  3. METHYLPREDNISOLONE [Concomitant]
     Indication: LUPUS NEPHRITIS
     Route: 042
  4. CYCLOPHOSPHAN [Concomitant]
     Indication: LUPUS NEPHRITIS
     Route: 042

REACTIONS (3)
  - ASPERGILLOSIS [None]
  - PNEUMONIA [None]
  - PURPURA [None]
